FAERS Safety Report 23360386 (Version 2)
Quarter: 2024Q1

REPORT INFORMATION
  Report Type: Spontaneous
  Country: NL (occurrence: NL)
  Receive Date: 20240103
  Receipt Date: 20240130
  Transmission Date: 20240410
  Serious: Yes (Other)
  Sender: FDA-Public Use
  Company Number: None

PATIENT
  Age: 9 Year
  Sex: Female
  Weight: 68.7 kg

DRUGS (1)
  1. BETAMETHASONE DIPROPIONATE [Suspect]
     Active Substance: BETAMETHASONE DIPROPIONATE
     Indication: Eczema
     Dosage: 0.5MG/G, 4 X PER WEEK
     Dates: start: 20030101, end: 20231123

REACTIONS (8)
  - Renal cyst [Not Recovered/Not Resolved]
  - Steroid dependence [Recovering/Resolving]
  - Topical steroid withdrawal reaction [Recovering/Resolving]
  - Maternal exposure during pregnancy [Unknown]
  - Skin swelling [Recovering/Resolving]
  - Pruritus [Recovering/Resolving]
  - Skin discharge [Recovering/Resolving]
  - Erythema [Recovering/Resolving]
